FAERS Safety Report 8623915 (Version 3)
Quarter: 2013Q2

REPORT INFORMATION
  Report Type: Report from Study
  Country: US (occurrence: US)
  Receive Date: 20120620
  Receipt Date: 20130404
  Transmission Date: 20140414
  Serious: Yes (Death)
  Sender: FDA-Public Use
  Company Number: US-ALEXION-A201201162

PATIENT
  Age: 59 Year
  Sex: Male

DRUGS (4)
  1. SOLIRIS [Suspect]
     Indication: PAROXYSMAL NOCTURNAL HAEMOGLOBINURIA
     Dosage: 600 MG, QW
     Route: 042
     Dates: start: 20120425
  2. NEUMEGA [Concomitant]
     Indication: PLATELET COUNT DECREASED
     Dosage: UNK
  3. NEUPOGEN [Concomitant]
     Indication: NEUTROPENIA
     Dosage: UNK
  4. ARANESP [Concomitant]
     Indication: ANAEMIA
     Dosage: UNK

REACTIONS (1)
  - Death [Fatal]
